FAERS Safety Report 17511954 (Version 1)
Quarter: 2020Q1

REPORT INFORMATION
  Report Type: Spontaneous
  Country: US (occurrence: US)
  Receive Date: 20200308
  Receipt Date: 20200308
  Transmission Date: 20200409
  Serious: No
  Sender: FDA-Public Use
  Company Number: US-TEVA-2020-US-1194468

PATIENT

DRUGS (1)
  1. DEXTROAMPHET SACCHARAT, AMPHET ASPARTATE, DEXTROAMPHET SULFATE AND AMPHET SULFAT [Suspect]
     Active Substance: AMPHETAMINE ASPARTATE\AMPHETAMINE SULFATE\DEXTROAMPHETAMINE SACCHARATE\DEXTROAMPHETAMINE SULFATE
     Route: 065

REACTIONS (8)
  - Apathy [Unknown]
  - Disturbance in attention [Unknown]
  - Job dissatisfaction [Unknown]
  - Asthenia [Unknown]
  - Agitation [Unknown]
  - Irritability [Unknown]
  - Product quality issue [Unknown]
  - Frustration tolerance decreased [Unknown]
